FAERS Safety Report 21651418 (Version 1)
Quarter: 2022Q4

REPORT INFORMATION
  Report Type: Spontaneous
  Country: CN (occurrence: CN)
  Receive Date: 20221128
  Receipt Date: 20221128
  Transmission Date: 20230112
  Serious: Yes (Life-Threatening)
  Sender: FDA-Public Use
  Company Number: CN-Merck Healthcare KGaA-9366842

PATIENT
  Age: 57 Year
  Sex: Male

DRUGS (5)
  1. ERBITUX [Suspect]
     Active Substance: CETUXIMAB
     Indication: Hypopharyngeal cancer
     Dosage: 100 MG, DAILY
     Route: 041
     Dates: start: 20221104, end: 20221104
  2. FLUOROURACIL [Concomitant]
     Active Substance: FLUOROURACIL
     Indication: Hypopharyngeal cancer
     Dosage: UNK
  3. CISPLATIN [Concomitant]
     Active Substance: CISPLATIN
     Indication: Hypopharyngeal cancer
     Dosage: UNK
  4. DIPHENHYDRAMINE [Concomitant]
     Active Substance: DIPHENHYDRAMINE
     Indication: Premedication
     Dosage: 20 MG, UNKNOWN
     Route: 030
  5. BETAMETHASONE [Concomitant]
     Active Substance: BETAMETHASONE
     Indication: Premedication
     Dosage: 5.26 MG, UNK
     Route: 041

REACTIONS (3)
  - Shock [Recovered/Resolved]
  - Rash [Recovered/Resolved]
  - Pruritus [Recovered/Resolved]

NARRATIVE: CASE EVENT DATE: 20221104
